FAERS Safety Report 14375432 (Version 1)
Quarter: 2018Q1

REPORT INFORMATION
  Report Type: Spontaneous
  Country: DE (occurrence: BR)
  Receive Date: 20180111
  Receipt Date: 20180111
  Transmission Date: 20180509
  Serious: Yes (Hospitalization, Other)
  Sender: FDA-Public Use
  Company Number: BR-TORRENT-00004231

PATIENT
  Age: 81 Year
  Sex: Female
  Weight: 70 kg

DRUGS (5)
  1. METFORMIN HYDROCHLORIDE. [Concomitant]
     Active Substance: METFORMIN HYDROCHLORIDE
     Indication: DIABETES MELLITUS
     Dosage: 1 TAB (LUNCHTIME) 1 TAB (DINNERTIME), START DATE: APPROXIMATELY 1998
     Route: 048
  2. RESPIDON [Suspect]
     Active Substance: RISPERIDONE
     Indication: NERVOUSNESS
     Dosage: AT NIGHT
     Route: 048
     Dates: start: 20171129, end: 20171222
  3. ALPRAZOLAM. [Concomitant]
     Active Substance: ALPRAZOLAM
     Indication: MENTAL DISORDER
     Dosage: ONE TABLET AT NIGHT
     Route: 048
     Dates: start: 201712, end: 201712
  4. CAPTOPRIL. [Concomitant]
     Active Substance: CAPTOPRIL
     Indication: HYPERTENSION
     Dosage: 1 TAB (MORNING) 1 TAB (NIGHT), START DATE: APPROXIMATELY 1998
     Route: 048
  5. LONGACTIL [Suspect]
     Active Substance: CHLORPROMAZINE HYDROCHLORIDE
     Indication: MENTAL DISORDER
     Dosage: ONE TABLET AT NIGHT
     Route: 048
     Dates: start: 20171129, end: 20171222

REACTIONS (7)
  - Somnolence [Not Recovered/Not Resolved]
  - Off label use [Unknown]
  - Slow speech [Not Recovered/Not Resolved]
  - Decreased appetite [Not Recovered/Not Resolved]
  - Musculoskeletal stiffness [Recovered/Resolved]
  - Urinary tract infection [Not Recovered/Not Resolved]
  - Reduced facial expression [Not Recovered/Not Resolved]

NARRATIVE: CASE EVENT DATE: 201711
